FAERS Safety Report 5054379-0 (Version None)
Quarter: 2006Q3

REPORT INFORMATION
  Report Type: 
  Country: None (occurrence: None)
  Receive Date: 20060713
  Receipt Date: 20060705
  Transmission Date: 20061208
  Serious: Yes (Other)
  Sender: FDA-Public Use
  Company Number: 224730

PATIENT
  Age: 62 Year
  Sex: Female
  Weight: 59 kg

DRUGS (7)
  1. XOLAIR [Suspect]
     Indication: ASTHMA
     Dosage: 150 MG, SUBCUTANEOUS; 150 MG, Q4W, SUBCUTANEOUS
     Route: 058
     Dates: start: 20060201
  2. XOLAIR [Suspect]
     Indication: ASTHMA
     Dosage: 150 MG, SUBCUTANEOUS; 150 MG, Q4W, SUBCUTANEOUS
     Route: 058
     Dates: start: 20060621
  3. XOLAIR [Suspect]
  4. FORADIL [Concomitant]
  5. SINGULAIR [Concomitant]
  6. QVAR 40 [Concomitant]
  7. THEOPHYLLINE [Concomitant]

REACTIONS (2)
  - GINGIVAL SWELLING [None]
  - SWOLLEN TONGUE [None]
